FAERS Safety Report 13328302 (Version 1)
Quarter: 2017Q1

REPORT INFORMATION
  Report Type: Spontaneous
  Country: US (occurrence: US)
  Receive Date: 20170313
  Receipt Date: 20170313
  Transmission Date: 20170428
  Serious: No
  Sender: FDA-Public Use
  Company Number: US-BEH-2017078759

PATIENT
  Sex: Female
  Weight: 54.42 kg

DRUGS (9)
  1. ALLEGRA [Concomitant]
     Active Substance: FEXOFENADINE HYDROCHLORIDE
     Route: 065
  2. CLONIDINE. [Concomitant]
     Active Substance: CLONIDINE
     Route: 065
  3. SERTRALINE [Concomitant]
     Active Substance: SERTRALINE HYDROCHLORIDE
     Route: 065
  4. IBUPROFEN. [Concomitant]
     Active Substance: IBUPROFEN
     Route: 065
  5. BERINERT [Suspect]
     Active Substance: HUMAN C1-ESTERASE INHIBITOR
     Indication: HEREDITARY ANGIOEDEMA
     Dosage: 1500 IU, PRN
     Route: 042
     Dates: start: 20160615
  6. SODIUM CHLORIDE. [Concomitant]
     Active Substance: SODIUM CHLORIDE
     Route: 065
  7. EPIPEN [Concomitant]
     Active Substance: EPINEPHRINE
     Route: 065
  8. ARMOUR THYROID [Concomitant]
     Active Substance: THYROID, PORCINE
     Route: 065
  9. ROPINIROLE. [Concomitant]
     Active Substance: ROPINIROLE
     Route: 065

REACTIONS (1)
  - Herpes zoster [Unknown]
